FAERS Safety Report 7079262-0 (Version None)
Quarter: 2010Q4

REPORT INFORMATION
  Report Type: 
  Country: None (occurrence: None)
  Receive Date: 20101102
  Receipt Date: 20101029
  Transmission Date: 20110411
  Serious: Yes (Hospitalization)
  Sender: FDA-Public Use
  Company Number: FR-ROCHE-737515

PATIENT
  Sex: Male

DRUGS (7)
  1. ROCEPHIN [Suspect]
     Route: 042
     Dates: start: 20100926, end: 20101008
  2. ROVAMYCINE [Suspect]
     Route: 048
     Dates: start: 20100930, end: 20101008
  3. CORTANCYL [Concomitant]
     Route: 048
     Dates: start: 20100929
  4. ZOLOFT [Concomitant]
  5. OFLOCET [Concomitant]
  6. LEXOMIL [Concomitant]
  7. STILNOX [Concomitant]

REACTIONS (2)
  - CHOLESTASIS [None]
  - CYTOLYTIC HEPATITIS [None]
